FAERS Safety Report 19693755 (Version 1)
Quarter: 2021Q3

REPORT INFORMATION
  Report Type: Spontaneous
  Country: US (occurrence: US)
  Receive Date: 20210812
  Receipt Date: 20210812
  Transmission Date: 20211014
  Serious: Yes (Other)
  Sender: FDA-Public Use
  Company Number: US-BAYER-2021-190425

PATIENT
  Sex: Male

DRUGS (2)
  1. CIPRO [Suspect]
     Active Substance: CIPROFLOXACIN HYDROCHLORIDE
  2. LEVAQUIN [Suspect]
     Active Substance: LEVOFLOXACIN

REACTIONS (11)
  - Suicidal ideation [None]
  - Mental disability [None]
  - Disorientation [None]
  - Nervousness [None]
  - Anxiety [None]
  - Cognitive disorder [None]
  - Disturbance in attention [None]
  - Agitation [None]
  - Depression [None]
  - Memory impairment [None]
  - Cardiac disorder [None]
